FAERS Safety Report 11124113 (Version 1)
Quarter: 2015Q2

REPORT INFORMATION
  Report Type: Spontaneous
  Country: GB (occurrence: GB)
  Receive Date: 20150520
  Receipt Date: 20150520
  Transmission Date: 20150821
  Serious: Yes (Disabling)
  Sender: FDA-Public Use
  Company Number: PHHY2015GB057477

PATIENT
  Age: 51 Year
  Sex: Female
  Weight: 120.65 kg

DRUGS (1)
  1. GABAPENTIN. [Suspect]
     Active Substance: GABAPENTIN
     Indication: ARTHRALGIA
     Route: 048
     Dates: start: 20150215, end: 20150228

REACTIONS (3)
  - Postmenopausal haemorrhage [Unknown]
  - Dysmenorrhoea [Unknown]
  - Menorrhagia [Unknown]
